FAERS Safety Report 15336484 (Version 1)
Quarter: 2018Q3

REPORT INFORMATION
  Report Type: Spontaneous
  Country: PL (occurrence: PL)
  Receive Date: 20180830
  Receipt Date: 20180830
  Transmission Date: 20181010
  Serious: Yes (Other)
  Sender: FDA-Public Use
  Company Number: PHHY2018PL078139

PATIENT
  Age: 45 Year
  Sex: Female

DRUGS (12)
  1. CYCLOPHOSPHAMIDE. [Suspect]
     Active Substance: CYCLOPHOSPHAMIDE
     Dosage: UNK (8 CYCLES)
     Route: 065
     Dates: start: 201611
  2. RIBOCICLIB. [Suspect]
     Active Substance: RIBOCICLIB
     Indication: BREAST CANCER
     Dosage: UNK
     Route: 065
  3. DOXORUBICIN [Suspect]
     Active Substance: DOXORUBICIN
     Indication: BREAST CANCER
     Dosage: UNK (6 CYCLES)
     Route: 065
  4. LETROZOL [Suspect]
     Active Substance: LETROZOLE
     Dosage: UNK
     Route: 065
     Dates: start: 201808
  5. DOCETAXEL. [Suspect]
     Active Substance: DOCETAXEL
     Indication: BREAST CANCER
     Dosage: UNK (6 CYCLES)
     Route: 065
  6. MYOCET [Suspect]
     Active Substance: DOXORUBICIN
     Dosage: UNK (8 CYCLES)
     Route: 065
     Dates: start: 201704
  7. CYCLOPHOSPHAMIDE. [Suspect]
     Active Substance: CYCLOPHOSPHAMIDE
     Indication: BREAST CANCER
     Dosage: UNK (6 CYCLES)
     Route: 065
  8. FULVESTRANT. [Suspect]
     Active Substance: FULVESTRANT
     Indication: BREAST CANCER
     Dosage: UNK
     Route: 065
  9. LETROZOL [Suspect]
     Active Substance: LETROZOLE
     Indication: BREAST CANCER
     Dosage: UNK
     Route: 065
     Dates: start: 201704
  10. CYCLOPHOSPHAMIDE. [Suspect]
     Active Substance: CYCLOPHOSPHAMIDE
     Dosage: UNK (8 CYCLES)
     Route: 065
     Dates: start: 201704
  11. MYOCET [Suspect]
     Active Substance: DOXORUBICIN
     Indication: BREAST CANCER
     Dosage: UNK (8 CYCLES)
     Route: 065
     Dates: start: 201611
  12. TAMOXIFEN [Suspect]
     Active Substance: TAMOXIFEN
     Indication: BREAST CANCER
     Dosage: UNK
     Route: 065

REACTIONS (6)
  - Metastases to uterus [Unknown]
  - Malignant neoplasm progression [Unknown]
  - Metastases to ovary [Unknown]
  - Metastases to bone [Unknown]
  - Metastases to liver [Unknown]
  - Metastases to breast [Unknown]

NARRATIVE: CASE EVENT DATE: 201608
